FAERS Safety Report 5028220-6 (Version None)
Quarter: 2006Q2

REPORT INFORMATION
  Report Type: 
  Country: None (occurrence: None)
  Receive Date: 20060613
  Receipt Date: 20060601
  Transmission Date: 20061013
  Serious: Yes (Hospitalization)
  Sender: FDA-Public Use
  Company Number: 2006071830

PATIENT
  Age: 65 Year
  Sex: Female

DRUGS (7)
  1. MEDROL [Suspect]
     Indication: RHEUMATOID ARTHRITIS
     Dosage: 8 MG (8 MG, 1 IN 1 D), ORAL
     Route: 048
     Dates: start: 20040101
  2. METHOTREXATE [Suspect]
     Indication: RHEUMATOID ARTHRITIS
  3. ACETYLSALICYLIC ACID SRT [Suspect]
     Indication: RHEUMATOID ARTHRITIS
     Dosage: 100 MG (100 MG, 1 IN 1 D), ORAL
     Route: 048
  4. CHLOROQUINE                  (CHLOROQUINE) [Suspect]
     Indication: RHEUMATOID ARTHRITIS
     Dosage: 250 MG (250 MG, 1 IN 1 D), ORAL
     Route: 048
  5. FOLIC ACID [Concomitant]
  6. VOLTAREN [Concomitant]
  7. ALENDRONATE SODIUM [Concomitant]

REACTIONS (5)
  - ANOREXIA [None]
  - DYSPEPSIA [None]
  - GASTRIC ULCER [None]
  - GASTRITIS EROSIVE [None]
  - VOMITING [None]
